FAERS Safety Report 5990168-8 (Version None)
Quarter: 2008Q4

REPORT INFORMATION
  Report Type: 
  Country: None (occurrence: None)
  Receive Date: 20081211
  Receipt Date: 20081127
  Transmission Date: 20090506
  Serious: Yes (Disabling, Other)
  Sender: FDA-Public Use
  Company Number: PHHO2007MX04425

PATIENT
  Sex: Female

DRUGS (5)
  1. STALEVO 100 [Suspect]
     Indication: PARKINSON'S DISEASE
     Dosage: 2X 200/100/25MG A DAY
     Route: 048
     Dates: end: 20070204
  2. STALEVO 100 [Suspect]
     Dosage: 1X 200/100/25MG A DAY
     Route: 048
     Dates: start: 20070204
  3. STALEVO 100 [Suspect]
     Dosage: 200/100/2MG
  4. ANAPSIQUE [Concomitant]
  5. LEVOTHYROXINE SODIUM [Concomitant]

REACTIONS (3)
  - MUSCLE RIGIDITY [None]
  - SKIN ATROPHY [None]
  - TREMOR [None]
